FAERS Safety Report 6708276-2 (Version None)
Quarter: 2010Q2

REPORT INFORMATION
  Report Type: 
  Country: None (occurrence: None)
  Receive Date: 20100503
  Receipt Date: 20090518
  Transmission Date: 20101027
  Serious: No
  Sender: FDA-Public Use
  Company Number: US-ASTRAZENECA-2009UW12752

PATIENT
  Age: 48 Year
  Sex: Female
  Weight: 50.8 kg

DRUGS (6)
  1. NEXIUM [Suspect]
     Route: 048
  2. MYLANTA [Concomitant]
  3. ASTELIN [Concomitant]
  4. XANAX [Concomitant]
  5. TYLENOL-500 [Concomitant]
  6. DECONGESTANT [Concomitant]

REACTIONS (2)
  - DRUG DOSE OMISSION [None]
  - GASTROOESOPHAGEAL REFLUX DISEASE [None]
